FAERS Safety Report 6347001-4 (Version None)
Quarter: 2009Q3

REPORT INFORMATION
  Report Type: 
  Country: None (occurrence: None)
  Receive Date: 20090908
  Receipt Date: 20090908
  Transmission Date: 20100115
  Serious: Yes (Life-Threatening, Hospitalization, Disabling, Other)
  Sender: FDA-Public Use
  Company Number: None

PATIENT
  Age: 28 Year
  Sex: Female
  Weight: 68.0396 kg

DRUGS (3)
  1. YAZ [Suspect]
     Indication: ACNE
     Dosage: 3MG AS PERSCRIBED PO
     Route: 048
     Dates: start: 20080501, end: 20090518
  2. YAZ [Suspect]
     Indication: CONTRACEPTION
     Dosage: 3MG AS PERSCRIBED PO
     Route: 048
     Dates: start: 20080501, end: 20090518
  3. YAZ [Suspect]
     Indication: PREMENSTRUAL SYNDROME
     Dosage: 3MG AS PERSCRIBED PO
     Route: 048
     Dates: start: 20080501, end: 20090518

REACTIONS (2)
  - INTRACRANIAL VENOUS SINUS THROMBOSIS [None]
  - ISCHAEMIC STROKE [None]
